FAERS Safety Report 5357469-8 (Version None)
Quarter: 2007Q2

REPORT INFORMATION
  Report Type: 
  Country: None (occurrence: None)
  Receive Date: 20070614
  Receipt Date: 20070531
  Transmission Date: 20071010
  Serious: Yes (Other)
  Sender: FDA-Public Use
  Company Number: US-ELI_LILLY_AND_COMPANY-US200703003732

PATIENT
  Age: 76 Year
  Sex: Female
  Weight: 59.863 kg

DRUGS (7)
  1. FORTEO [Suspect]
     Indication: OSTEOPOROSIS
     Dosage: 20 UG, DAILY (1/D)
     Dates: start: 20061015, end: 20070228
  2. FORTEO [Suspect]
     Dosage: 20 UG, QOD
     Dates: start: 20070321
  3. CALCIUM CHLORIDE [Concomitant]
     Dosage: 1500 MG, DAILY (1/D)
  4. CALCIUM CHLORIDE [Concomitant]
     Dosage: 2000 MG, UNK
     Dates: end: 20070101
  5. VITAMIN D [Concomitant]
     Dosage: 800 MG, DAILY (1/D)
  6. SIMVASTIN-MEPHA [Concomitant]
     Dosage: 40 MG, UNK
  7. QUINAPRIL [Concomitant]
     Dosage: 10 MG, UNK

REACTIONS (4)
  - ANAEMIA [None]
  - BLOOD URIC ACID INCREASED [None]
  - HYPERCALCAEMIA [None]
  - RENAL IMPAIRMENT [None]
